FAERS Safety Report 6726750-X (Version None)
Quarter: 2010Q2

REPORT INFORMATION
  Report Type: 
  Country: None (occurrence: None)
  Receive Date: 20100515
  Receipt Date: 20100507
  Transmission Date: 20101027
  Serious: Yes (Hospitalization)
  Sender: FDA-Public Use
  Company Number: DE-JNJFOC-20100502392

PATIENT
  Age: 74 Year
  Sex: Female

DRUGS (7)
  1. TAVANIC [Suspect]
     Indication: URINARY TRACT INFECTION
     Route: 048
  2. MULTAQ [Interacting]
     Indication: TACHYARRHYTHMIA
     Route: 048
  3. MULTAQ [Interacting]
     Indication: ATRIAL FIBRILLATION
     Route: 048
  4. CITALOPRAM [Interacting]
     Indication: DRUG USE FOR UNKNOWN INDICATION
     Route: 048
  5. DIGITOXIN [Interacting]
     Indication: DRUG USE FOR UNKNOWN INDICATION
     Route: 065
  6. METOPROLOL TARTRATE [Concomitant]
     Indication: ATRIAL FIBRILLATION
     Route: 065
  7. TORASEMIDE [Concomitant]
     Indication: CARDIAC FAILURE
     Route: 065

REACTIONS (4)
  - CONTRAINDICATION TO MEDICAL TREATMENT [None]
  - DRUG INTERACTION [None]
  - TACHYCARDIA [None]
  - TORSADE DE POINTES [None]
